FAERS Safety Report 12098426 (Version 2)
Quarter: 2016Q2

REPORT INFORMATION
  Report Type: Spontaneous
  Country: TN (occurrence: TN)
  Receive Date: 20160222
  Receipt Date: 20160405
  Transmission Date: 20160815
  Serious: Yes (Death, Hospitalization, Other)
  Sender: FDA-Public Use
  Company Number: TN-ALEMBIC PHARMACUETICALS LIMITED-2016SCAL000125

PATIENT
  Age: 35 Year
  Sex: Female

DRUGS (1)
  1. LITHIUM CARBONATE. [Suspect]
     Active Substance: LITHIUM CARBONATE
     Indication: BIPOLAR I DISORDER
     Dosage: 500 MG, BID

REACTIONS (3)
  - Toxicity to various agents [Recovered/Resolved]
  - Multiple organ dysfunction syndrome [Fatal]
  - Overdose [Recovered/Resolved]
